FAERS Safety Report 17287916 (Version 2)
Quarter: 2020Q1

REPORT INFORMATION
  Report Type: Spontaneous
  Country: CN (occurrence: CN)
  Receive Date: 20200120
  Receipt Date: 20200124
  Transmission Date: 20200409
  Serious: Yes (Other)
  Sender: FDA-Public Use
  Company Number: CN-GLAXOSMITHKLINE-CN2020APC006652

PATIENT

DRUGS (7)
  1. XIN HUANG PIAN [Suspect]
     Active Substance: HERBALS
     Indication: VARICELLA
     Dosage: 0.64 G, TID
     Route: 048
     Dates: start: 20190409, end: 20190410
  2. LORATADINE. [Suspect]
     Active Substance: LORATADINE
     Indication: VARICELLA
     Dosage: 10 MG, QD
     Route: 048
     Dates: start: 20190409, end: 20190410
  3. ACYCLOVIR. [Suspect]
     Active Substance: ACYCLOVIR
     Indication: VARICELLA
     Dosage: UNK
     Route: 061
     Dates: start: 20190409, end: 20190411
  4. ACYCLOVIR. [Suspect]
     Active Substance: ACYCLOVIR
     Indication: VARICELLA
     Dosage: 0.75 G, TID, EVERY 8 HOURS (Q8H)
     Route: 042
     Dates: start: 20190409
  5. ACYCLOVIR. [Suspect]
     Active Substance: ACYCLOVIR
     Dosage: 0.5 G, QD, EVERY 24 HOURS (Q24H)
     Route: 042
  6. GLUCOSE [Concomitant]
     Active Substance: DEXTROSE
     Indication: VARICELLA
     Dosage: 250 ML
     Route: 042
     Dates: start: 20190409
  7. ACYCLOVIR. [Suspect]
     Active Substance: ACYCLOVIR
     Dosage: 0.5 G, TID, EVERY 12 HOURS (Q24H)
     Route: 042
     Dates: start: 20190410

REACTIONS (11)
  - Leukopenia [Recovered/Resolved]
  - Fatigue [Recovered/Resolved]
  - Protein urine present [Recovered/Resolved]
  - Back pain [Recovered/Resolved]
  - Conjunctival haemorrhage [Recovered/Resolved]
  - Acute kidney injury [Recovered/Resolved]
  - Urine output decreased [Recovered/Resolved]
  - Nausea [Recovered/Resolved]
  - Vomiting [Recovered/Resolved]
  - Eyelid oedema [Recovered/Resolved]
  - Rales [Recovered/Resolved]

NARRATIVE: CASE EVENT DATE: 20190410
